FAERS Safety Report 26145454 (Version 1)
Quarter: 2025Q4

REPORT INFORMATION
  Report Type: Spontaneous
  Country: EU (occurrence: EU)
  Receive Date: 20251211
  Receipt Date: 20251211
  Transmission Date: 20260118
  Serious: Yes (Hospitalization, Other)
  Sender: GALDERMA
  Company Number: EU-GALDERMA-NL2025025836

PATIENT

DRUGS (1)
  1. AKLIEF [Suspect]
     Active Substance: TRIFAROTENE
     Indication: Product used for unknown indication
     Dosage: 1 DOSAGE FORM
     Route: 061

REACTIONS (37)
  - Pustule [Recovering/Resolving]
  - Swelling face [Recovering/Resolving]
  - Pain [Recovering/Resolving]
  - Exophthalmos [Recovering/Resolving]
  - Eye pain [Recovering/Resolving]
  - Fistula [Recovering/Resolving]
  - Purulent discharge [Recovering/Resolving]
  - Oedema mucosal [Recovering/Resolving]
  - Skin induration [Recovering/Resolving]
  - Eye swelling [Recovering/Resolving]
  - Vision blurred [Recovering/Resolving]
  - Malaise [Recovering/Resolving]
  - Pyrexia [Recovering/Resolving]
  - Cavernous sinus thrombosis [Recovering/Resolving]
  - Venous thrombosis [Recovering/Resolving]
  - Optic nerve injury [Recovering/Resolving]
  - Ophthalmoplegia [Recovering/Resolving]
  - Blindness unilateral [Recovering/Resolving]
  - Hypothalamo-pituitary disorder [Recovering/Resolving]
  - Central hypothyroidism [Recovered/Resolved]
  - Intracranial infection [Recovering/Resolving]
  - Pneumonia [Recovering/Resolving]
  - Lung abscess [Recovering/Resolving]
  - Infectious pleural effusion [Recovering/Resolving]
  - Cerebral mass effect [Recovering/Resolving]
  - Arteritis [Recovering/Resolving]
  - Cerebral infarction [Recovering/Resolving]
  - Septic embolus [Recovering/Resolving]
  - Disseminated intravascular coagulation [Recovering/Resolving]
  - Consciousness fluctuating [Recovering/Resolving]
  - Dyspnoea [Recovering/Resolving]
  - Paresis [Recovering/Resolving]
  - Gait disturbance [Recovering/Resolving]
  - Cellulitis [Recovering/Resolving]
  - Disorientation [Recovering/Resolving]
  - Motor dysfunction [Recovering/Resolving]
  - Hypersensitivity [Unknown]
